FAERS Safety Report 6509088-5 (Version None)
Quarter: 2009Q4

REPORT INFORMATION
  Report Type: 
  Country: None (occurrence: None)
  Receive Date: 20091218
  Receipt Date: 20091218
  Transmission Date: 20100525
  Serious: Yes (Disabling)
  Sender: FDA-Public Use
  Company Number: None

PATIENT
  Age: 53 Year
  Sex: Male
  Weight: 87.9978 kg

DRUGS (1)
  1. IC VERAPAMIL SA 240MG TABLET MYL CVS PHARMACY [Suspect]
     Indication: HYPERTENSION
     Dosage: 1 TABLET 1 PER DAY PO
     Route: 048
     Dates: start: 20091206, end: 20091216

REACTIONS (4)
  - ABDOMINAL PAIN UPPER [None]
  - CONSTIPATION [None]
  - DECREASED APPETITE [None]
  - RASH GENERALISED [None]
